FAERS Safety Report 12337187 (Version 1)
Quarter: 2016Q2

REPORT INFORMATION
  Report Type: Spontaneous
  Country: US (occurrence: None)
  Receive Date: 20160504
  Receipt Date: 20160504
  Transmission Date: 20160815
  Serious: Yes (Disabling)
  Sender: FDA-Public Use
  Company Number: None

PATIENT
  Age: 70 Year
  Sex: Female
  Weight: 105.69 kg

DRUGS (10)
  1. ONE A DAY [Concomitant]
  2. OMEPRAZOLE MAGNESIUM. [Concomitant]
     Active Substance: OMEPRAZOLE MAGNESIUM
  3. LORATADINE. [Concomitant]
     Active Substance: LORATADINE
  4. CRESTOR [Suspect]
     Active Substance: ROSUVASTATIN CALCIUM
     Indication: BLOOD CHOLESTEROL
     Dosage: 1 PILL PER DAY. 1 BEDTIME BY MOUTH.
     Route: 048
     Dates: end: 20160102
  5. AMLODIPINE BES [Concomitant]
  6. BAYER-LOW DOSE [Concomitant]
  7. HYDROCHLOROTHIAZIDE. [Concomitant]
     Active Substance: HYDROCHLOROTHIAZIDE
  8. VITAMIN B COMPLEX [Concomitant]
     Active Substance: CYANOCOBALAMIN\DEXPANTHENOL\NIACINAMIDE\PYRIDOXINE HYDROCHLORIDE\RIBOFLAVIN 5^-PHOSPHATE SODIUM\THIAMINE HYDROCHLORIDE\VITAMIN B COMPLEX
  9. ATENOL [Concomitant]
     Active Substance: ATENOLOL
  10. CANDESARTAN [Concomitant]
     Active Substance: CANDESARTAN

REACTIONS (7)
  - Vertigo [None]
  - Abasia [None]
  - Documented hypersensitivity to administered product [None]
  - Malaise [None]
  - Deafness unilateral [None]
  - Eating disorder [None]
  - Nausea [None]

NARRATIVE: CASE EVENT DATE: 20151222
